FAERS Safety Report 6494903-4 (Version None)
Quarter: 2009Q4

REPORT INFORMATION
  Report Type: 
  Country: None (occurrence: None)
  Receive Date: 20091214
  Receipt Date: 20090413
  Transmission Date: 20100525
  Serious: No
  Sender: FDA-Public Use
  Company Number: US-BRISTOL-MYERS SQUIBB COMPANY-14579320

PATIENT
  Age: 12 Year
  Sex: Female

DRUGS (2)
  1. ABILIFY [Suspect]
     Indication: ABNORMAL BEHAVIOUR
     Dosage: STOPPED ON 12FEB2009;RESTARTED ON 16FEB2009.
     Route: 048
     Dates: start: 20090204
  2. ABILIFY [Suspect]
     Indication: ANGER
     Dosage: STOPPED ON 12FEB2009;RESTARTED ON 16FEB2009.
     Route: 048
     Dates: start: 20090204

REACTIONS (1)
  - THERAPEUTIC RESPONSE UNEXPECTED [None]
